FAERS Safety Report 8353014-3 (Version None)
Quarter: 2012Q2

REPORT INFORMATION
  Report Type: 
  Country: None (occurrence: None)
  Receive Date: 20120511
  Receipt Date: 20120427
  Transmission Date: 20120825
  Serious: Yes (Other)
  Sender: FDA-Public Use
  Company Number: US-SHIONOGI, INC-2012000153

PATIENT

DRUGS (5)
  1. FLUOXETINE HYDROCHLORIDE [Concomitant]
     Dosage: UNK
     Dates: start: 20111108, end: 20120101
  2. MESTINON [Concomitant]
     Indication: MYASTHENIA GRAVIS
     Dosage: UNK
     Dates: start: 20101201
  3. POTASSIUM CHLORIDE [Concomitant]
     Dosage: UNK
     Dates: start: 20110801
  4. AMBIEN CR [Concomitant]
     Dosage: UNK
     Dates: start: 20110307, end: 20120101
  5. ROBINUL [Suspect]
     Indication: DIARRHOEA
     Dosage: UNK
     Dates: start: 20110801, end: 20120407

REACTIONS (5)
  - DIARRHOEA [None]
  - SOMNOLENCE [None]
  - INCREASED APPETITE [None]
  - MYASTHENIA GRAVIS [None]
  - VISUAL IMPAIRMENT [None]
